FAERS Safety Report 4355844-1 (Version None)
Quarter: 2004Q2

REPORT INFORMATION
  Report Type: 
  Country: None (occurrence: None)
  Receive Date: 20040505
  Receipt Date: 20040428
  Transmission Date: 20050107
  Serious: Yes (Life-Threatening, Hospitalization)
  Sender: FDA-Public Use
  Company Number: STA-AE-04-MTX-133

PATIENT
  Age: 45 Year
  Sex: Female

DRUGS (6)
  1. RHEUMATREX [Suspect]
     Indication: RHEUMATOID ARTHRITIS
     Dosage: 6 MG 1X PER 1 WK, ORAL
     Route: 048
     Dates: start: 20040306, end: 20040314
  2. FAMOTIDINE [Concomitant]
  3. JUVELA (TOCOPHEROL) [Concomitant]
  4. RENAGEL (SEVELAMER) [Concomitant]
  5. PREDNISOLONE [Concomitant]
  6. CALCIUM CARBONATE [Concomitant]

REACTIONS (10)
  - BONE MARROW DEPRESSION [None]
  - EPISTAXIS [None]
  - INFLAMMATION [None]
  - LIVER DISORDER [None]
  - LIVER FUNCTION TEST ABNORMAL [None]
  - PANCYTOPENIA [None]
  - PHARYNGOLARYNGEAL PAIN [None]
  - PYREXIA [None]
  - STOMATITIS [None]
  - TRANSAMINASES INCREASED [None]
